FAERS Safety Report 10509040 (Version 2)
Quarter: 2014Q4

REPORT INFORMATION
  Report Type: Spontaneous
  Country: US (occurrence: US)
  Receive Date: 20141009
  Receipt Date: 20141202
  Transmission Date: 20150528
  Serious: No
  Sender: FDA-Public Use
  Company Number: US-ASTRAZENECA-2014SE69488

PATIENT
  Age: 65 Year
  Sex: Female
  Weight: 51.7 kg

DRUGS (13)
  1. VERAPAMIL [Concomitant]
     Active Substance: VERAPAMIL HYDROCHLORIDE
     Indication: DIZZINESS
     Route: 048
     Dates: start: 2007
  2. CLONAZAPAM [Concomitant]
     Indication: ANXIETY
     Route: 048
     Dates: start: 2012
  3. TUDORZA PRESSAIR [Concomitant]
     Active Substance: ACLIDINIUM BROMIDE
     Indication: CHRONIC OBSTRUCTIVE PULMONARY DISEASE
     Dosage: TWO TIMES A DAY
  4. PREVACID [Concomitant]
     Active Substance: LANSOPRAZOLE
     Indication: ULCER
     Route: 048
  5. ADDARALL [Concomitant]
     Indication: ATTENTION DEFICIT/HYPERACTIVITY DISORDER
     Route: 048
     Dates: start: 2013
  6. ZOCOR [Concomitant]
     Active Substance: SIMVASTATIN
  7. SYMBICORT [Suspect]
     Active Substance: BUDESONIDE\FORMOTEROL FUMARATE DIHYDRATE
     Indication: CHRONIC OBSTRUCTIVE PULMONARY DISEASE
     Dosage: 320 MCG, TWO TIMES A DAY
     Route: 055
     Dates: start: 2012, end: 201410
  8. SELENIUM [Concomitant]
     Active Substance: SELENIUM
     Indication: LIVER DISORDER
     Route: 048
  9. SYMBICORT [Suspect]
     Active Substance: BUDESONIDE\FORMOTEROL FUMARATE DIHYDRATE
     Indication: ASTHMA
     Dosage: 320 MCG, TWO TIMES A DAY
     Route: 055
     Dates: start: 2012, end: 201410
  10. FISH OIL [Concomitant]
     Active Substance: FISH OIL
     Route: 048
  11. PROVENTIL [Concomitant]
     Active Substance: ALBUTEROL
     Indication: UNEVALUABLE EVENT
  12. ZETIA [Concomitant]
     Active Substance: EZETIMIBE
     Indication: BLOOD CHOLESTEROL ABNORMAL
     Route: 048
     Dates: start: 2004
  13. OSCAL [Concomitant]
     Active Substance: CALCIUM CARBONATE
     Indication: MINERAL SUPPLEMENTATION
     Route: 048

REACTIONS (14)
  - Visual impairment [Unknown]
  - Dysphonia [Not Recovered/Not Resolved]
  - Candida infection [Recovered/Resolved]
  - Pain in extremity [Unknown]
  - Hot flush [Recovered/Resolved]
  - Malaise [Unknown]
  - Stress [Unknown]
  - Muscle strain [Not Recovered/Not Resolved]
  - Productive cough [Unknown]
  - Intentional product misuse [Unknown]
  - Fatigue [Not Recovered/Not Resolved]
  - Hypersomnia [Unknown]
  - Dyspnoea [Unknown]
  - Device misuse [Unknown]

NARRATIVE: CASE EVENT DATE: 2014
